FAERS Safety Report 20881042 (Version 2)
Quarter: 2022Q4

REPORT INFORMATION
  Report Type: Report from Study
  Country: UY (occurrence: UY)
  Receive Date: 20220526
  Receipt Date: 20221208
  Transmission Date: 20230112
  Serious: Yes (Other)
  Sender: FDA-Public Use
  Company Number: UY-ABBVIE-22K-168-4409619-00

PATIENT
  Age: 47 Year
  Sex: Female

DRUGS (1)
  1. RINVOQ [Suspect]
     Active Substance: UPADACITINIB
     Indication: Rheumatoid arthritis
     Route: 048
     Dates: start: 20210420

REACTIONS (2)
  - Spinal cord infection [Not Recovered/Not Resolved]
  - Nerve block [Unknown]

NARRATIVE: CASE EVENT DATE: 20221129
